FAERS Safety Report 6899301-7 (Version None)
Quarter: 2010Q3

REPORT INFORMATION
  Report Type: 
  Country: None (occurrence: None)
  Receive Date: 20100802
  Receipt Date: 20090325
  Transmission Date: 20110219
  Serious: No
  Sender: FDA-Public Use
  Company Number: US-PFIZER INC-2009189199

PATIENT
  Sex: Male
  Weight: 83.914 kg

DRUGS (1)
  1. NEURONTIN [Suspect]
     Indication: NEUROPATHY PERIPHERAL
     Dosage: 300 MG, 2X/DAY
     Route: 048
     Dates: start: 20090201, end: 20090301

REACTIONS (4)
  - DIZZINESS [None]
  - FEELING ABNORMAL [None]
  - SPINAL COLUMN STENOSIS [None]
  - THINKING ABNORMAL [None]
